FAERS Safety Report 5238312-4 (Version None)
Quarter: 2007Q1

REPORT INFORMATION
  Report Type: 
  Country: None (occurrence: None)
  Receive Date: 20070215
  Receipt Date: 20070209
  Transmission Date: 20070707
  Serious: Yes (Hospitalization)
  Sender: FDA-Public Use
  Company Number: FR-ELI_LILLY_AND_COMPANY-FR200702001751

PATIENT
  Age: 85 Year
  Sex: Female
  Weight: 67 kg

DRUGS (6)
  1. ZYPREXA [Suspect]
     Dosage: 5 MG, DAILY (1/D)
     Route: 048
     Dates: start: 20060707, end: 20061217
  2. MEMANTINE HCL [Concomitant]
     Dosage: 0.5 D/F, 2/D
     Route: 048
     Dates: start: 20050414, end: 20061215
  3. ATHYMIL [Concomitant]
     Dosage: UNK, UNKNOWN
     Route: 048
     Dates: start: 20051101, end: 20061217
  4. LEXOMIL [Concomitant]
     Dosage: UNK, UNKNOWN
     Route: 048
     Dates: start: 20060501, end: 20061217
  5. TEMESTA [Concomitant]
     Dosage: UNK, UNKNOWN
     Route: 048
     Dates: start: 20060701, end: 20061219
  6. PARACETAMOL [Concomitant]
     Dosage: UNK, UNKNOWN
     Route: 048
     Dates: end: 20061217

REACTIONS (3)
  - PYELONEPHRITIS [None]
  - RENAL FAILURE ACUTE [None]
  - RHABDOMYOLYSIS [None]
